FAERS Safety Report 5338382-9 (Version None)
Quarter: 2007Q2

REPORT INFORMATION
  Report Type: 
  Country: None (occurrence: None)
  Receive Date: 20070405
  Receipt Date: 20061114
  Transmission Date: 20071010
  Serious: No
  Sender: FDA-Public Use
  Company Number: US200611002715

PATIENT
  Sex: Female

DRUGS (1)
  1. CYMBALTA [Suspect]
     Indication: NEURALGIA
     Dosage: 60 MG, ORAL
     Route: 048
     Dates: start: 20061001

REACTIONS (10)
  - ANOREXIA [None]
  - CHILLS [None]
  - DRY MOUTH [None]
  - FEAR [None]
  - FEELING HOT [None]
  - HEADACHE [None]
  - NAUSEA [None]
  - NECK PAIN [None]
  - NERVOUSNESS [None]
  - SOMNOLENCE [None]
